FAERS Safety Report 9528948 (Version 1)
Quarter: 2013Q2

REPORT INFORMATION
  Report Type: Spontaneous
  Country: US (occurrence: None)
  Receive Date: 20130401
  Receipt Date: 20130401
  Transmission Date: 20140414
  Serious: Yes (Other)
  Sender: FDA-Public Use
  Company Number: PHEH2012US025302

PATIENT
  Age: 77 Year
  Sex: Female

DRUGS (10)
  1. EXELON PATCH (RIVASTIGMINE) TRANS-THERAPEUTIC SYSTEM [Suspect]
     Indication: DEMENTIA ALZHEIMER^S TYPE
     Dosage: 1 PATCH A DAY
     Route: 062
  2. NAMENDA (MEMANTINE HYDROCHLORIDE) [Concomitant]
  3. ALPRAZOLAN (ALPRAZOLAM) [Concomitant]
  4. LEXAPRO (ESCITALOPRAM OXALATE) [Concomitant]
  5. BENAZEPRIL (BENAZEPRIL) [Concomitant]
  6. AMITRIPTYLINE (AMITRIPTYLINE) [Concomitant]
  7. ASPIRIN (ACETYLSALICYLIC ACID) [Concomitant]
  8. METOPROLOL (METOPROLOL) [Concomitant]
  9. KLOR-CON (POTASSIUM CHLORIDE) [Concomitant]
  10. LIPITOR (ATORVASTATIN CALCIUM) [Concomitant]

REACTIONS (2)
  - Dementia Alzheimer^s type [None]
  - Condition aggravated [None]
